FAERS Safety Report 9443879 (Version 3)
Quarter: 2014Q1

REPORT INFORMATION
  Report Type: Report from Study
  Country: KR (occurrence: KR)
  Receive Date: 20130806
  Receipt Date: 20140217
  Transmission Date: 20141002
  Serious: No
  Sender: FDA-Public Use
  Company Number: PHHY2013KR083125

PATIENT
  Age: 32 Year
  Sex: Male

DRUGS (33)
  1. AMN107 [Suspect]
     Indication: CHRONIC MYELOID LEUKAEMIA
     Dosage: 800 MG, QD
     Route: 048
     Dates: start: 20120802, end: 20120813
  2. AMN107 [Suspect]
     Dosage: 400 MG, QD
     Route: 048
     Dates: start: 20120820, end: 20120917
  3. AMN107 [Suspect]
     Dosage: 800 MG, QD
     Route: 048
     Dates: start: 20120924, end: 20121016
  4. AMN107 [Suspect]
     Dosage: 400 MG, PER DAY
     Route: 048
     Dates: start: 20121017, end: 20121030
  5. AMN107 [Suspect]
     Dosage: 800 MG, PER DAY
     Route: 048
     Dates: start: 20121031
  6. AMN107 [Suspect]
     Dosage: UNK
  7. BOEHMITE [Concomitant]
     Indication: GASTRITIS
     Dosage: 3 DF, UNK
     Route: 048
     Dates: start: 20120917, end: 20120923
  8. CEFTAZIDIME [Concomitant]
     Dosage: 6000 MG, UNK
     Route: 042
     Dates: start: 20120924, end: 20120926
  9. DOMPERIDONE [Concomitant]
     Indication: ABDOMINAL PAIN
     Dosage: 30 MG, UNK
     Route: 048
     Dates: start: 20120916, end: 20120916
  10. ESOMEPRAZOLE [Concomitant]
     Indication: GASTROINTESTINAL DISORDER
     Dosage: 40 MG, UNK
     Route: 042
     Dates: start: 20120917, end: 20120917
  11. FAMOTIDINE [Concomitant]
     Indication: ABDOMINAL PAIN
     Dosage: 40 MG, UNK
     Route: 042
     Dates: start: 20120917, end: 20120919
  12. GRASIN [Concomitant]
     Indication: NEUTROPENIA
     Dosage: 300 UG, UNK
     Route: 058
     Dates: start: 20120813, end: 20120813
  13. ITOPRIDE [Concomitant]
     Indication: ABDOMINAL PAIN
     Dosage: 150 MG, UNK
     Route: 048
     Dates: start: 20120918, end: 20120919
  14. LACTULOSE [Concomitant]
     Indication: CONSTIPATION
     Dosage: 45 ML, UNK
     Route: 048
     Dates: start: 20120916, end: 20120916
  15. LACTULOSE [Concomitant]
     Dosage: 90 ML, UNK
     Route: 048
     Dates: start: 20120925, end: 20120926
  16. LANSOPRAZOLE [Concomitant]
     Indication: PEPTIC ULCER
     Dosage: 60 MG, UNK
     Route: 048
     Dates: start: 20120919, end: 20121016
  17. LEVOFLOXACIN [Concomitant]
     Indication: UPPER RESPIRATORY TRACT INFECTION
     Dosage: 500 MG, UNK
     Route: 048
     Dates: start: 20120820, end: 20120824
  18. MAGNESIUM OXIDE [Concomitant]
     Indication: CONSTIPATION
     Dosage: 3000 MG, UNK
     Route: 048
     Dates: start: 20120918, end: 20120926
  19. METOCLOPRAMIDE HCL [Concomitant]
     Indication: NAUSEA
     Dosage: 60 MG, UNK
     Route: 042
     Dates: start: 20120918, end: 20120918
  20. METOCLOPRAMIDE HCL [Concomitant]
     Dosage: 60 MG, UNK
     Route: 042
     Dates: start: 20120923, end: 20120926
  21. MORPHINE HCL [Concomitant]
     Indication: ABDOMINAL PAIN
     Dosage: 5 MG, UNK
     Route: 042
     Dates: start: 20120916, end: 20120918
  22. MOSAPRIDE [Concomitant]
     Indication: DYSPEPSIA
     Dosage: 15 MG, UNK
     Route: 048
     Dates: start: 20120926, end: 20121002
  23. PHENIRAMIN [Concomitant]
     Dosage: 4 MG, UNK
     Route: 042
     Dates: start: 20120813, end: 20120813
  24. PHENIRAMIN [Concomitant]
     Dosage: 4 MG, UNK
     Route: 042
     Dates: start: 20120820, end: 20120820
  25. SCOPOLAMINE [Concomitant]
     Indication: ABDOMINAL PAIN
     Dosage: 20 MG, UNK
     Route: 042
     Dates: start: 20120918, end: 20120918
  26. SODIUM ALGINATE [Concomitant]
     Dosage: 120 ML, UNK
     Route: 048
     Dates: start: 20120917, end: 20120923
  27. TEPRENONE [Concomitant]
     Indication: PEPTIC ULCER
     Dosage: 150 MG, UNK
     Route: 048
     Dates: start: 20120916, end: 20120917
  28. TRAMADOL HCL [Concomitant]
     Indication: ABDOMINAL PAIN
     Dosage: 50 MG, UNK
     Route: 042
     Dates: start: 20120916, end: 20120924
  29. ULTRACET [Concomitant]
     Indication: PAIN
     Dosage: 2175 MG, UNK
     Route: 048
     Dates: start: 20120924
  30. ZALTOPROFEN [Concomitant]
     Indication: ABDOMINAL PAIN
     Dosage: 240 MG, UNK
     Route: 048
     Dates: start: 20120916, end: 20120917
  31. ANTIBIOTICS [Concomitant]
  32. TYLENOL [Concomitant]
     Dosage: 650 MG, UNK
     Dates: start: 20120820, end: 20120903
  33. ZYRTEC [Concomitant]
     Indication: RASH
     Dosage: 5 MG, UNK
     Route: 048
     Dates: start: 20130103, end: 20130221

REACTIONS (1)
  - Rash [Recovered/Resolved]
